FAERS Safety Report 6371336-2 (Version None)
Quarter: 2009Q3

REPORT INFORMATION
  Report Type: 
  Country: None (occurrence: None)
  Receive Date: 20090923
  Receipt Date: 20090914
  Transmission Date: 20100115
  Serious: No
  Sender: FDA-Public Use
  Company Number: US-ELI_LILLY_AND_COMPANY-US200907006854

PATIENT
  Sex: Female

DRUGS (9)
  1. FORTEO [Suspect]
     Indication: OSTEOPOROSIS
     Dosage: 20 UG, DAILY (1/D)
     Dates: start: 20080101, end: 20090101
  2. FORTEO [Suspect]
     Dosage: 20 UG, DAILY (1/D)
     Dates: start: 20090101
  3. CELEBREX [Concomitant]
  4. ATENOLOL [Concomitant]
  5. NORVASC [Concomitant]
  6. ZOCOR [Concomitant]
  7. COUMADIN [Concomitant]
  8. ACTONEL [Concomitant]
  9. AMBIEN [Concomitant]

REACTIONS (1)
  - NO ADVERSE EVENT [None]
